FAERS Safety Report 9720474 (Version 1)
Quarter: 2013Q4

REPORT INFORMATION
  Report Type: Spontaneous
  Country: US (occurrence: US)
  Receive Date: 20131129
  Receipt Date: 20131129
  Transmission Date: 20140711
  Serious: No
  Sender: FDA-Public Use
  Company Number: US-US-EMD SERONO, INC.-7251696

PATIENT
  Sex: 0

DRUGS (1)
  1. SEROSTIM [(SOMATROPIN (RDNA ORIGIN) FOR INJECTION)] [Suspect]
     Indication: PRODUCT USED FOR UNKNOWN INDICATION
     Dates: start: 20130924, end: 20131114

REACTIONS (5)
  - Diarrhoea [Unknown]
  - Swelling [Unknown]
  - Nausea [Unknown]
  - Carpal tunnel syndrome [Unknown]
  - Drug ineffective [Unknown]
